FAERS Safety Report 16751617 (Version 1)
Quarter: 2019Q3

REPORT INFORMATION
  Report Type: Spontaneous
  Country: US (occurrence: US)
  Receive Date: 20190828
  Receipt Date: 20190828
  Transmission Date: 20191005
  Serious: No
  Sender: FDA-Public Use
  Company Number: US-ENDO PHARMACEUTICALS INC-2019-102123

PATIENT
  Sex: Female
  Weight: 62.6 kg

DRUGS (3)
  1. PREDNISONE. [Suspect]
     Active Substance: PREDNISONE
     Indication: CARPAL TUNNEL SYNDROME
  2. PREDNISONE. [Suspect]
     Active Substance: PREDNISONE
     Indication: CHRONIC OBSTRUCTIVE PULMONARY DISEASE
     Dosage: ANYWHERE FROM 5 MG TO 10 MG, FOR LIKE 7 DAYS AND THEN GOING DOWN, OFF AND ON
     Route: 048
     Dates: start: 2010
  3. PREDNISONE. [Suspect]
     Active Substance: PREDNISONE
     Indication: ARTHRITIS

REACTIONS (3)
  - Cataract [Not Recovered/Not Resolved]
  - Blood glucose increased [Unknown]
  - Off label use [Recovered/Resolved]
